FAERS Safety Report 25887465 (Version 4)
Quarter: 2025Q4

REPORT INFORMATION
  Report Type: Spontaneous
  Country: JP (occurrence: JP)
  Receive Date: 20251006
  Receipt Date: 20251215
  Transmission Date: 20260117
  Serious: Yes (Other)
  Sender: JOHNSON AND JOHNSON
  Company Number: JP-JNJFOC-20250927278

PATIENT
  Age: 74 Year
  Sex: Female

DRUGS (27)
  1. DARATUMUMAB [Suspect]
     Active Substance: DARATUMUMAB
     Indication: Plasma cell myeloma
     Dosage: DARA-VRD, DAY1
     Route: 058
     Dates: start: 20250825, end: 20250825
  2. DARATUMUMAB [Suspect]
     Active Substance: DARATUMUMAB
     Dosage: DARA-VRD, DAY8
     Route: 058
     Dates: start: 20250901, end: 20250901
  3. DARATUMUMAB [Suspect]
     Active Substance: DARATUMUMAB
     Dosage: DRD, DAY8
     Route: 058
     Dates: start: 20250926, end: 20250926
  4. DARATUMUMAB [Suspect]
     Active Substance: DARATUMUMAB
     Dosage: DRD, DAY15
     Route: 058
     Dates: start: 20251003, end: 20251003
  5. DARATUMUMAB [Suspect]
     Active Substance: DARATUMUMAB
     Dosage: DRD, DAY1
     Route: 058
     Dates: start: 20251017, end: 20251017
  6. DARATUMUMAB [Suspect]
     Active Substance: DARATUMUMAB
     Dosage: DARA-VRD, DAY8
     Route: 058
     Dates: start: 20251024, end: 20251024
  7. DARATUMUMAB [Suspect]
     Active Substance: DARATUMUMAB
     Dosage: DARA-VRD, DAY15
     Route: 058
     Dates: start: 20251031, end: 20251031
  8. DARATUMUMAB [Suspect]
     Active Substance: DARATUMUMAB
     Dosage: DARA-VRD, DAY1
     Route: 058
     Dates: start: 20250919, end: 20250919
  9. VELCADE [Suspect]
     Active Substance: BORTEZOMIB
     Indication: Plasma cell myeloma
     Dosage: DARA-VRD, DAY1
     Dates: start: 20250825, end: 20250825
  10. VELCADE [Suspect]
     Active Substance: BORTEZOMIB
     Dosage: DARA-VRD, DAY4
     Dates: start: 20250828, end: 20250828
  11. VELCADE [Suspect]
     Active Substance: BORTEZOMIB
     Dosage: DARA-VRD, DAY8
     Dates: start: 20250901, end: 20250901
  12. VELCADE [Suspect]
     Active Substance: BORTEZOMIB
     Dosage: DARA-VRD, DAY11
     Dates: start: 20250904, end: 20250904
  13. VELCADE [Suspect]
     Active Substance: BORTEZOMIB
     Dosage: DVD
  14. VELCADE [Suspect]
     Active Substance: BORTEZOMIB
     Dosage: DARA-VRD, DAY1
     Dates: start: 20251017, end: 20251017
  15. VELCADE [Suspect]
     Active Substance: BORTEZOMIB
     Dosage: DARA-VRD, DAY4
     Dates: start: 20251020, end: 20251020
  16. VELCADE [Suspect]
     Active Substance: BORTEZOMIB
     Dosage: DARA-VRD, DAY8
     Dates: start: 20251024, end: 20251024
  17. VELCADE [Suspect]
     Active Substance: BORTEZOMIB
     Dosage: DARA-VRD?DAY11
     Dates: start: 20251027, end: 20251027
  18. LENALIDOMIDE [Concomitant]
     Active Substance: LENALIDOMIDE
     Indication: Plasma cell myeloma
     Dosage: DARA-VRD, DAY1-14
     Dates: start: 20250825, end: 20250907
  19. LENALIDOMIDE [Concomitant]
     Active Substance: LENALIDOMIDE
     Dosage: DARA-VRD, DAY1-14
     Dates: start: 20251017, end: 20251030
  20. DEXAMETHASONE [Concomitant]
     Active Substance: DEXAMETHASONE
     Indication: Product used for unknown indication
     Dosage: DARA-VRD, DAY1,4,8,11 (OMIT D2,5,9,12)
     Dates: start: 20250825, end: 20250904
  21. DEXAMETHASONE [Concomitant]
     Active Substance: DEXAMETHASONE
     Dosage: DRD, 5 DOSES
     Dates: start: 20250919, end: 2025
  22. DEXAMETHASONE [Concomitant]
     Active Substance: DEXAMETHASONE
     Dosage: DARA-VRD, 5 DOSES
     Dates: start: 20251017, end: 2025
  23. AZOSEMIDE [Concomitant]
     Active Substance: AZOSEMIDE
     Indication: Cardiac failure acute
  24. DAPAGLIFLOZIN [Concomitant]
     Active Substance: DAPAGLIFLOZIN
     Indication: Cardiac failure acute
  25. SPIRONOLACTONE [Concomitant]
     Active Substance: SPIRONOLACTONE
     Indication: Cardiac failure acute
  26. ENTRESTO [Concomitant]
     Active Substance: SACUBITRIL\VALSARTAN
     Indication: Cardiac failure acute
  27. CARVEDILOL [Concomitant]
     Active Substance: CARVEDILOL
     Indication: Cardiac failure acute

REACTIONS (2)
  - Liver disorder [Unknown]
  - Off label use [Unknown]

NARRATIVE: CASE EVENT DATE: 20250825
